FAERS Safety Report 10417294 (Version 1)
Quarter: 2014Q3

REPORT INFORMATION
  Report Type: Spontaneous
  Country: US (occurrence: US)
  Receive Date: 20140828
  Receipt Date: 20140828
  Transmission Date: 20150326
  Serious: No
  Sender: FDA-Public Use
  Company Number: US-ENDO PHARMACEUTICALS INC.-PRED20130056

PATIENT
  Sex: Male

DRUGS (9)
  1. PREDNISONE TABLETS [Suspect]
     Active Substance: PREDNISONE
     Indication: PRODUCT USED FOR UNKNOWN INDICATION
     Dosage: 70MG
     Route: 048
     Dates: start: 2010
  2. CELLCEPT [Concomitant]
     Active Substance: MYCOPHENOLATE MOFETIL\MYCOPHENOLATE MOFETIL HYDROCHLORIDE
     Indication: PRODUCT USED FOR UNKNOWN INDICATION
     Dosage: UNK
     Route: 065
  3. PREDNISONE TABLETS [Suspect]
     Active Substance: PREDNISONE
     Dosage: 50MG
     Route: 048
  4. IMURAN [Concomitant]
     Active Substance: AZATHIOPRINE
     Indication: PRODUCT USED FOR UNKNOWN INDICATION
     Dosage: UNK
     Route: 065
  5. MESTINON [Concomitant]
     Active Substance: PYRIDOSTIGMINE BROMIDE
     Indication: PRODUCT USED FOR UNKNOWN INDICATION
     Route: 065
  6. PREDNISONE TABLETS [Suspect]
     Active Substance: PREDNISONE
     Dosage: 40MG
     Route: 048
  7. PREDNISONE TABLETS [Suspect]
     Active Substance: PREDNISONE
     Dosage: 60MG
     Route: 048
  8. PREDNISONE TABLETS [Suspect]
     Active Substance: PREDNISONE
     Dosage: 30MG
     Route: 048
  9. PREDNISONE TABLETS [Suspect]
     Active Substance: PREDNISONE
     Dosage: 20MG
     Route: 048
     Dates: end: 2013

REACTIONS (1)
  - Arthritis [Unknown]
